FAERS Safety Report 9471581 (Version 1)
Quarter: 2013Q3

REPORT INFORMATION
  Report Type: Spontaneous
  Country: US (occurrence: US)
  Receive Date: 20130822
  Receipt Date: 20130822
  Transmission Date: 20140515
  Serious: Yes (Hospitalization)
  Sender: FDA-Public Use
  Company Number: US-B.I. PHARMACEUTICALS,INC./RIDGEFIELD-2013-BI-25711BP

PATIENT
  Age: 65 Year
  Sex: Female
  Weight: 58 kg

DRUGS (8)
  1. SPIRIVA [Suspect]
     Indication: CHRONIC OBSTRUCTIVE PULMONARY DISEASE
     Dosage: 18 MCG
     Route: 055
     Dates: start: 2011
  2. AMBIEN [Concomitant]
     Indication: INSOMNIA
     Dosage: 5 MG
     Route: 048
  3. LEVOTHYROXINE [Concomitant]
     Indication: THYROIDECTOMY
     Dosage: 0.125 MG
     Route: 048
  4. AMLODIPINE [Concomitant]
     Indication: HYPERTENSION
     Route: 048
  5. LISINOPRIL [Concomitant]
     Indication: HYPERTENSION
     Route: 048
  6. VITAMIN D 3 [Concomitant]
     Dosage: 2000 U
     Route: 048
  7. VITAMIN B12 [Concomitant]
     Dosage: 5000 MG
     Route: 048
  8. PROAIR HFA [Concomitant]
     Indication: DYSPNOEA
     Dosage: FORMULATION: INHALATION SOLUTION
     Route: 055

REACTIONS (5)
  - Arthropathy [Recovered/Resolved]
  - Arthropathy [Recovered/Resolved]
  - Rectal haemorrhage [Recovered/Resolved]
  - Abnormal loss of weight [Recovered/Resolved]
  - Cataract [Not Recovered/Not Resolved]
